FAERS Safety Report 24636243 (Version 1)
Quarter: 2024Q4

REPORT INFORMATION
  Report Type: Spontaneous
  Country: US (occurrence: None)
  Receive Date: 20241118
  Receipt Date: 20241118
  Transmission Date: 20250115
  Serious: Yes (Death)
  Sender: Public
  Company Number: None

PATIENT
  Age: 94 Year
  Sex: Female

DRUGS (1)
  1. PROLIA [Suspect]
     Active Substance: DENOSUMAB
     Dosage: 60 MG  EVERY 6 MONTHS SUBCUTANEOUS?
     Route: 058
     Dates: start: 20231128

REACTIONS (1)
  - Death [None]

NARRATIVE: CASE EVENT DATE: 20241001
